FAERS Safety Report 4838383-0 (Version None)
Quarter: 2005Q4

REPORT INFORMATION
  Report Type: 
  Country: None (occurrence: None)
  Receive Date: 20051128
  Receipt Date: 20050919
  Transmission Date: 20060501
  Serious: Yes (Death, Hospitalization)
  Sender: FDA-Public Use
  Company Number: PHBS2005PH13697

PATIENT
  Age: 52 Year
  Sex: Female

DRUGS (9)
  1. RAPAMUNE [Suspect]
     Dates: start: 20050728, end: 20050816
  2. NEORAL [Suspect]
     Indication: RENAL TRANSPLANT
     Dosage: UNK, UNK
     Route: 048
     Dates: start: 20050728, end: 20050816
  3. PREDNISONE [Concomitant]
     Dates: start: 20050728
  4. ISONIAZID [Concomitant]
     Dates: start: 20050808
  5. CEFUROXIME [Concomitant]
     Dates: start: 20050807
  6. ISOSORBIDE MONONITRATE [Concomitant]
     Dates: start: 20050802
  7. CLARITHROMYCIN [Concomitant]
     Dates: start: 20050807
  8. HYDRALAZINE [Concomitant]
     Dates: start: 20050803
  9. SULFAMETHOXAZOLE + TRIMETHOPRIM [Concomitant]
     Dates: start: 20050802

REACTIONS (8)
  - AZOTAEMIA [None]
  - BLOOD CREATININE INCREASED [None]
  - DRUG LEVEL INCREASED [None]
  - HAEMODIALYSIS [None]
  - NEPHROPATHY TOXIC [None]
  - NOSOCOMIAL INFECTION [None]
  - PNEUMONIA [None]
  - SEPSIS [None]
